FAERS Safety Report 8520036-9 (Version None)
Quarter: 2012Q3

REPORT INFORMATION
  Report Type: 
  Country: None (occurrence: None)
  Receive Date: 20120719
  Receipt Date: 20120713
  Transmission Date: 20120928
  Serious: No
  Sender: FDA-Public Use
  Company Number: US-PFIZER INC-2012169749

PATIENT
  Sex: Female
  Weight: 77.098 kg

DRUGS (8)
  1. PROMETHAZINE HYDROCHLORIDE [Suspect]
     Indication: NAUSEA
  2. OXYCODONE HYDROCHLORIDE [Suspect]
     Indication: INTERVERTEBRAL DISC DEGENERATION
  3. OXYCODONE HYDROCHLORIDE [Suspect]
     Indication: ARTHRITIS
  4. OXYCODONE HYDROCHLORIDE [Suspect]
     Indication: TEMPOROMANDIBULAR JOINT SYNDROME
  5. PROMETHAZINE HYDROCHLORIDE [Suspect]
     Indication: VERTIGO
     Dosage: 25 MG, 1X/DAY
  6. LYRICA [Suspect]
     Indication: FACIAL PAIN
     Dosage: 200 MG, 2X/DAY
     Dates: start: 20110101
  7. LYRICA [Suspect]
     Dosage: 200 MG, 3X/DAY
     Dates: end: 20120701
  8. OXYCODONE HYDROCHLORIDE [Suspect]
     Indication: FACIAL PAIN
     Dosage: 15 MG, 3X/DAY
     Dates: start: 20110101, end: 20120625

REACTIONS (7)
  - ABDOMINAL PAIN UPPER [None]
  - FEELING ABNORMAL [None]
  - SOMNOLENCE [None]
  - MALAISE [None]
  - DIARRHOEA [None]
  - PAIN [None]
  - SKIN ODOUR ABNORMAL [None]
